FAERS Safety Report 24560579 (Version 1)
Quarter: 2024Q4

REPORT INFORMATION
  Report Type: Spontaneous
  Country: MX (occurrence: MX)
  Receive Date: 20241029
  Receipt Date: 20241029
  Transmission Date: 20250114
  Serious: Yes (Other)
  Sender: ELI LILLY AND COMPANY
  Company Number: MX-Merck Healthcare KGaA-2024055763

PATIENT
  Sex: Male

DRUGS (1)
  1. ERBITUX [Suspect]
     Active Substance: CETUXIMAB
     Indication: Product used for unknown indication
     Dosage: 680 MG, UNKNOWN
     Route: 042

REACTIONS (5)
  - Muscular weakness [Unknown]
  - Myoclonus [Unknown]
  - Depressed level of consciousness [Unknown]
  - Hypotension [Unknown]
  - Rash [Unknown]
